FAERS Safety Report 8890535 (Version 5)
Quarter: 2012Q4

REPORT INFORMATION
  Report Type: 
  Country: US (occurrence: US)
  Receive Date: 20121107
  Receipt Date: 20121226
  Transmission Date: 20130627
  Serious: Yes (Other)
  Sender: FDA-Public Use
  Company Number: US-PFIZER INC-2012273919

PATIENT
  Age: 48 Year
  Sex: Female
  Weight: 215 kg

DRUGS (7)
  1. GENOTROPIN MQ [Suspect]
     Indication: HYPOPITUITARISM
     Dosage: 1.2 mg, 1x/day
     Route: 058
     Dates: start: 20120831, end: 20121101
  2. GENOTROPIN MQ [Suspect]
     Indication: GROWTH HORMONE DEFICIENCY
     Dosage: 0.8 mg, Daily
     Route: 058
     Dates: start: 20121102, end: 20121120
  3. HYDROCODONE [Concomitant]
     Dosage: UNK
  4. OXAPROZIN [Concomitant]
     Dosage: UNK
  5. CLARITIN [Concomitant]
     Dosage: UNK
  6. VICOPROFEN [Concomitant]
     Dosage: UNK, as directed
  7. VOLTAREN [Concomitant]
     Dosage: UNK, as directed

REACTIONS (13)
  - Cardiac failure congestive [Unknown]
  - Carpal tunnel syndrome [Unknown]
  - Pain in jaw [Unknown]
  - Oedema peripheral [Recovering/Resolving]
  - Oedema peripheral [Not Recovered/Not Resolved]
  - Hypoaesthesia [Unknown]
  - Gait disturbance [Unknown]
  - Insulin-like growth factor increased [Unknown]
  - Abdominal distension [Unknown]
  - Arthralgia [Unknown]
  - Joint swelling [Unknown]
  - Arthropathy [Unknown]
  - Oedema peripheral [Unknown]
